FAERS Safety Report 20634304 (Version 5)
Quarter: 2023Q2

REPORT INFORMATION
  Report Type: Report from Study
  Country: US (occurrence: US)
  Receive Date: 20220325
  Receipt Date: 20230505
  Transmission Date: 20230721
  Serious: Yes (Hospitalization, Other)
  Sender: FDA-Public Use
  Company Number: US-TAKEDA-2021TUS081884

PATIENT
  Age: 75 Year
  Sex: Male
  Weight: 53.51 kg

DRUGS (28)
  1. .ALPHA.1-PROTEINASE INHIBITOR HUMAN [Suspect]
     Active Substance: .ALPHA.1-PROTEINASE INHIBITOR HUMAN
     Indication: Chronic obstructive pulmonary disease
     Dosage: 60 MILLIGRAM/KILOGRAM, 1/WEEK
     Route: 042
     Dates: start: 20211017
  2. .ALPHA.1-PROTEINASE INHIBITOR HUMAN [Suspect]
     Active Substance: .ALPHA.1-PROTEINASE INHIBITOR HUMAN
     Indication: Chronic obstructive pulmonary disease
     Dosage: 60 MILLIGRAM/KILOGRAM, 1/WEEK
     Route: 042
     Dates: start: 20211017
  3. .ALPHA.1-PROTEINASE INHIBITOR HUMAN [Suspect]
     Active Substance: .ALPHA.1-PROTEINASE INHIBITOR HUMAN
     Indication: Alpha-1 antitrypsin deficiency
     Dosage: 60 MILLIGRAM, 1/WEEK
     Route: 042
     Dates: start: 20221023
  4. .ALPHA.1-PROTEINASE INHIBITOR HUMAN [Suspect]
     Active Substance: .ALPHA.1-PROTEINASE INHIBITOR HUMAN
     Indication: Alpha-1 antitrypsin deficiency
     Dosage: 60 MILLIGRAM, 1/WEEK
     Route: 042
     Dates: start: 20221023
  5. HEPARIN [Concomitant]
     Active Substance: HEPARIN SODIUM
  6. XANAX [Concomitant]
     Active Substance: ALPRAZOLAM
  7. ZOLOFT [Concomitant]
     Active Substance: SERTRALINE HYDROCHLORIDE
  8. ALBUTEROL SULFATE [Concomitant]
     Active Substance: ALBUTEROL SULFATE
  9. EPINEPHRINE [Concomitant]
     Active Substance: EPINEPHRINE
  10. SODIUM CHLORIDE [Concomitant]
     Active Substance: SODIUM CHLORIDE
  11. MINERALS\VITAMINS [Concomitant]
     Active Substance: MINERALS\VITAMINS
  12. FLUTICASONE PROPIONATE [Concomitant]
     Active Substance: FLUTICASONE PROPIONATE
  13. PREDNISONE [Concomitant]
     Active Substance: PREDNISONE
  14. SPIRIVA RESPIMAT [Concomitant]
     Active Substance: TIOTROPIUM BROMIDE
  15. LIDOCAINE [Concomitant]
     Active Substance: LIDOCAINE
  16. SINGULAIR [Concomitant]
     Active Substance: MONTELUKAST SODIUM
  17. PERFOROMIST [Concomitant]
     Active Substance: FORMOTEROL FUMARATE DIHYDRATE
  18. FAMOTIDINE [Concomitant]
     Active Substance: FAMOTIDINE
  19. OXYGEN [Concomitant]
     Active Substance: OXYGEN
  20. TYLENOL [Concomitant]
     Active Substance: ACETAMINOPHEN
  21. FOLIC ACID [Concomitant]
     Active Substance: FOLIC ACID
  22. AMBIEN [Concomitant]
     Active Substance: ZOLPIDEM TARTRATE
  23. PROAIR HFA [Concomitant]
     Active Substance: ALBUTEROL SULFATE
  24. COMBIVENT RESPIMAT [Concomitant]
     Active Substance: ALBUTEROL SULFATE\IPRATROPIUM BROMIDE
  25. SYMBICORT [Concomitant]
     Active Substance: BUDESONIDE\FORMOTEROL FUMARATE DIHYDRATE
  26. DIPHENHYDRAMINE [Concomitant]
     Active Substance: DIPHENHYDRAMINE
  27. TYLENOL EXTRA STRENGTH [Concomitant]
     Active Substance: ACETAMINOPHEN
  28. FLUTICASONE [Concomitant]
     Active Substance: FLUTICASONE

REACTIONS (6)
  - Generalised tonic-clonic seizure [Unknown]
  - Cataract [Unknown]
  - Basal cell carcinoma [Unknown]
  - Localised infection [Recovering/Resolving]
  - Sinusitis [Recovered/Resolved]
  - Product dose omission issue [Unknown]

NARRATIVE: CASE EVENT DATE: 20220719
